FAERS Safety Report 6711407-1 (Version None)
Quarter: 2010Q2

REPORT INFORMATION
  Report Type: 
  Country: None (occurrence: None)
  Receive Date: 20100505
  Receipt Date: 20100422
  Transmission Date: 20101027
  Serious: Yes (Life-Threatening, Hospitalization, Other)
  Sender: FDA-Public Use
  Company Number: GB-PFIZER INC-2010029593

PATIENT
  Age: 71 Year
  Sex: Male
  Weight: 69.85 kg

DRUGS (1)
  1. XALATAN [Suspect]
     Indication: GLAUCOMA
     Dosage: 50 UG, 1X/DAY
     Route: 047
     Dates: start: 19991101, end: 20031114

REACTIONS (2)
  - MALIGNANT MELANOMA [None]
  - OCULAR NEOPLASM [None]
